FAERS Safety Report 25182818 (Version 1)
Quarter: 2025Q2

REPORT INFORMATION
  Report Type: Spontaneous
  Country: PL (occurrence: PL)
  Receive Date: 20250410
  Receipt Date: 20250410
  Transmission Date: 20250717
  Serious: Yes (Life-Threatening, Hospitalization)
  Sender: CHEPLAPHARM
  Company Number: None

PATIENT
  Age: 66 Year
  Sex: Female
  Weight: 80 kg

DRUGS (3)
  1. OLANZAPINE [Suspect]
     Active Substance: OLANZAPINE
     Route: 048
  2. RAMIPRIL [Suspect]
     Active Substance: RAMIPRIL
     Route: 048
  3. ALCOHOL [Suspect]
     Active Substance: ALCOHOL

REACTIONS (2)
  - Suicide attempt [Unknown]
  - Toxicity to various agents [Unknown]

NARRATIVE: CASE EVENT DATE: 20200517
